FAERS Safety Report 8984316 (Version 1)
Quarter: 2012Q4

REPORT INFORMATION
  Report Type: 
  Country: BR (occurrence: BR)
  Receive Date: 20121226
  Receipt Date: 20121226
  Transmission Date: 20130627
  Serious: Yes (Hospitalization, Other)
  Sender: FDA-Public Use
  Company Number: PHHY2012BR118918

PATIENT
  Age: 30 Year
  Sex: Female

DRUGS (1)
  1. FORASEQ [Suspect]
     Indication: ASTHMA
     Dosage: 1 DF, PRN (1 inhalation on normal and 2 inhalations when weather was hot and stuffy)
     Dates: end: 20121216

REACTIONS (2)
  - Urinary tract infection [Unknown]
  - Malaise [Unknown]
